FAERS Safety Report 4510416-0 (Version None)
Quarter: 2004Q4

REPORT INFORMATION
  Report Type: 
  Country: None (occurrence: None)
  Receive Date: 20041122
  Receipt Date: 20041108
  Transmission Date: 20050328
  Serious: Yes (Hospitalization)
  Sender: FDA-Public Use
  Company Number: 208021

PATIENT
  Age: 59 Year
  Sex: Female
  Weight: 72 kg

DRUGS (13)
  1. RITUXAN [Suspect]
     Indication: CHRONIC LYMPHOCYTIC LEUKAEMIA
     Dosage: 671  MG, INTRAVENOUS
     Route: 042
     Dates: start: 20040322
  2. FLUDARA [Suspect]
     Indication: CHRONIC LYMPHOCYTIC LEUKAEMIA
     Dosage: 45 MG, INTRAVENOUS
     Route: 042
     Dates: start: 20040322
  3. LEVAQUIN [Concomitant]
  4. NEUPOGEN [Concomitant]
  5. GLUCOPHAGE [Concomitant]
  6. AVANDIA [Concomitant]
  7. FOLIC ACID [Concomitant]
  8. CENTRUM SILVER (MULTIVITAMINS NOS, MINERLS NOS) [Concomitant]
  9. VITAMIN C (ASCORBIC ACID) [Concomitant]
  10. ACYCLOVIR [Concomitant]
  11. BACTRIM DS [Concomitant]
  12. LIPITOR (AOTRVASTATIN CALCIUM) [Concomitant]
  13. IBUPROFEN [Concomitant]

REACTIONS (14)
  - ARTHROPOD BITE [None]
  - BLOOD MAGNESIUM DECREASED [None]
  - BLOOD POTASSIUM DECREASED [None]
  - BODY TEMPERATURE INCREASED [None]
  - CELLULITIS [None]
  - ERYTHEMA [None]
  - NASOPHARYNGITIS [None]
  - NAUSEA [None]
  - NEUTROPENIA [None]
  - OEDEMA PERIPHERAL [None]
  - OSTEOMYELITIS [None]
  - PRODUCTIVE COUGH [None]
  - SPUTUM DISCOLOURED [None]
  - VOMITING [None]
